FAERS Safety Report 19936769 (Version 6)
Quarter: 2022Q2

REPORT INFORMATION
  Report Type: Spontaneous
  Country: DE (occurrence: DE)
  Receive Date: 20211009
  Receipt Date: 20220405
  Transmission Date: 20220720
  Serious: Yes (Other)
  Sender: FDA-Public Use
  Company Number: DE-NOVARTISPH-NVSC2021DE226067

PATIENT
  Age: 6 Year
  Sex: Female

DRUGS (5)
  1. MEKINIST [Suspect]
     Active Substance: TRAMETINIB DIMETHYL SULFOXIDE
     Indication: Neoplasm
     Dosage: 0.5 MG, QD
     Route: 065
     Dates: start: 202004
  2. MEKINIST [Suspect]
     Active Substance: TRAMETINIB DIMETHYL SULFOXIDE
     Indication: Optic glioma
     Dosage: 0.5 MG, QOD (EVERY SECOND DAY)
     Route: 065
     Dates: start: 2021
  3. MEKINIST [Suspect]
     Active Substance: TRAMETINIB DIMETHYL SULFOXIDE
     Dosage: 0.5 MG, (EVERY SECOND DAY)
     Route: 065
     Dates: end: 2021
  4. MEKINIST [Suspect]
     Active Substance: TRAMETINIB DIMETHYL SULFOXIDE
     Dosage: 1 MG/2X0.5 MG, QOD(EVERY SECOND DAY)
     Route: 065
     Dates: end: 2021
  5. MEKINIST [Suspect]
     Active Substance: TRAMETINIB DIMETHYL SULFOXIDE
     Dosage: 1 MG, QOD (EVERY SECOND DAY)
     Route: 065
     Dates: start: 2021

REACTIONS (8)
  - Neoplasm progression [Recovering/Resolving]
  - Joint swelling [Not Recovered/Not Resolved]
  - Rash [Unknown]
  - Kohler^s disease [Unknown]
  - Product use in unapproved indication [Unknown]
  - Protein urine present [Unknown]
  - Drug ineffective [Unknown]
  - Product use issue [Unknown]

NARRATIVE: CASE EVENT DATE: 20200101
